FAERS Safety Report 9341546 (Version 4)
Quarter: 2013Q3

REPORT INFORMATION
  Report Type: Report from Study
  Country: JP (occurrence: JP)
  Receive Date: 20130611
  Receipt Date: 20130909
  Transmission Date: 20140515
  Serious: Yes (Death, Hospitalization, Other)
  Sender: FDA-Public Use
  Company Number: JP-GENZYME-THYM-1003852

PATIENT
  Age: 19 Year
  Sex: Male
  Weight: 40 kg

DRUGS (6)
  1. THYMOGLOBULIN [Suspect]
     Indication: BONE MARROW CONDITIONING REGIMEN
     Dosage: 100 MG, QD
     Route: 065
     Dates: start: 20120621, end: 20120621
  2. LOXONIN [Suspect]
     Indication: HEADACHE
     Dosage: UNK
     Route: 065
     Dates: end: 20121114
  3. FLUDARA [Concomitant]
     Indication: ACUTE LYMPHOCYTIC LEUKAEMIA
     Dosage: UNK
     Route: 065
     Dates: start: 20120621, end: 20120625
  4. BUSULFEX [Concomitant]
     Indication: ACUTE LYMPHOCYTIC LEUKAEMIA
     Dosage: UNK
     Route: 065
     Dates: start: 20120624, end: 20120625
  5. LENDORMIN [Concomitant]
     Indication: INSOMNIA
     Dosage: UNK
     Route: 065
     Dates: start: 20120621
  6. SILECE [Concomitant]
     Indication: INSOMNIA
     Dosage: UNK
     Route: 065
     Dates: start: 20120621

REACTIONS (10)
  - Acute lymphocytic leukaemia recurrent [Fatal]
  - Pneumonia [Recovered/Resolved]
  - Chronic graft versus host disease [Unknown]
  - Acute graft versus host disease in skin [Unknown]
  - Muscular weakness [Not Recovered/Not Resolved]
  - Neuropathy peripheral [Not Recovered/Not Resolved]
  - Gastric ulcer [Recovered/Resolved]
  - Abdominal pain [Recovered/Resolved]
  - Pyrexia [Recovered/Resolved]
  - Pyrexia [Recovered/Resolved]
